FAERS Safety Report 10011448 (Version 1)
Quarter: 2014Q1

REPORT INFORMATION
  Report Type: Spontaneous
  Country: US (occurrence: US)
  Receive Date: 20140314
  Receipt Date: 20140314
  Transmission Date: 20141002
  Serious: No
  Sender: FDA-Public Use
  Company Number: US-ENDO PHARMACEUTICALS INC.-OXYC20130043

PATIENT
  Age: 30 Year
  Sex: Female

DRUGS (1)
  1. OXYCODONE HCL 5MG [Suspect]
     Indication: PAIN
     Route: 048
     Dates: start: 2013

REACTIONS (2)
  - Hypersensitivity [Not Recovered/Not Resolved]
  - Urticaria [Not Recovered/Not Resolved]
